FAERS Safety Report 7948699-7 (Version None)
Quarter: 2011Q4

REPORT INFORMATION
  Report Type: 
  Country: None (occurrence: None)
  Receive Date: 20111130
  Receipt Date: 20111130
  Transmission Date: 20120403
  Serious: Yes (Hospitalization)
  Sender: FDA-Public Use
  Company Number: None

PATIENT
  Age: 7 Year
  Sex: Female
  Weight: 26.7 kg

DRUGS (1)
  1. RHOPHYLAC [Suspect]
     Indication: IDIOPATHIC THROMBOCYTOPENIC PURPURA
     Dosage: 6700 INTERNATIONAL UNITS
     Route: 040
     Dates: start: 20111128, end: 20111128

REACTIONS (1)
  - INTRAVASCULAR HAEMOLYSIS [None]
